FAERS Safety Report 12585541 (Version 1)
Quarter: 2016Q3

REPORT INFORMATION
  Report Type: Report from Study
  Country: GB (occurrence: GB)
  Receive Date: 20160725
  Receipt Date: 20160725
  Transmission Date: 20161109
  Serious: Yes (Hospitalization, Other)
  Sender: FDA-Public Use
  Company Number: GB-AMGEN-GBRSL2016093303

PATIENT
  Sex: Female

DRUGS (1)
  1. ARANESP [Suspect]
     Active Substance: DARBEPOETIN ALFA
     Indication: PRODUCT USED FOR UNKNOWN INDICATION
     Dosage: 40 MCG, UNK
     Route: 065

REACTIONS (7)
  - Back pain [Unknown]
  - Malaise [Unknown]
  - Fluid overload [Unknown]
  - Transplant [Unknown]
  - Chest pain [Unknown]
  - Cholelithiasis [Unknown]
  - Transplant failure [Unknown]
